FAERS Safety Report 7020727-5 (Version None)
Quarter: 2010Q3

REPORT INFORMATION
  Report Type: 
  Country: None (occurrence: None)
  Receive Date: 20100927
  Receipt Date: 20100913
  Transmission Date: 20110219
  Serious: Yes (Other)
  Sender: FDA-Public Use
  Company Number: 2010EU004903

PATIENT
  Sex: Female

DRUGS (3)
  1. TACROLIMUS [Suspect]
     Indication: INTESTINAL TRANSPLANT
  2. CORTICOSTEROIDS [Suspect]
     Indication: INTESTINAL TRANSPLANT
  3. BASILIXIMAB (BASILIXIMAB) [Suspect]
     Indication: INTESTINAL TRANSPLANT

REACTIONS (4)
  - AUTOIMMUNE PANCYTOPENIA [None]
  - GRAFT VERSUS HOST DISEASE [None]
  - SURGICAL PROCEDURE REPEATED [None]
  - TRANSPLANT REJECTION [None]
